FAERS Safety Report 10988490 (Version 2)
Quarter: 2015Q2

REPORT INFORMATION
  Report Type: Spontaneous
  Country: US (occurrence: US)
  Receive Date: 20150404
  Receipt Date: 20150525
  Transmission Date: 20150821
  Serious: Yes (Other)
  Sender: FDA-Public Use
  Company Number: US-JNJFOC-20130905897

PATIENT

DRUGS (1)
  1. REMICADE [Suspect]
     Active Substance: INFLIXIMAB
     Indication: PRODUCT USED FOR UNKNOWN INDICATION
     Dosage: INFLIXIMAB FOR 2 YEARS
     Route: 042
     Dates: end: 2013

REACTIONS (2)
  - Cellulitis [Unknown]
  - Myalgia [Unknown]

NARRATIVE: CASE EVENT DATE: 2013
